FAERS Safety Report 23204401 (Version 1)
Quarter: 2023Q4

REPORT INFORMATION
  Report Type: Spontaneous
  Country: CN (occurrence: CN)
  Receive Date: 20231120
  Receipt Date: 20231120
  Transmission Date: 20240110
  Serious: Yes (Death, Hospitalization)
  Sender: FDA-Public Use
  Company Number: CN-STRIDES ARCOLAB LIMITED-2023SP016964

PATIENT
  Age: 50 Year
  Sex: Female

DRUGS (16)
  1. DEXAMETHASONE [Suspect]
     Active Substance: DEXAMETHASONE
     Indication: Myelosuppression
     Dosage: UNK
     Route: 065
     Dates: start: 202205
  2. GRANULOCYTE COLONY-STIMULATING FACTOR NOS [Suspect]
     Active Substance: GRANULOCYTE COLONY-STIMULATING FACTOR NOS
     Indication: Myelosuppression
     Dosage: UNK
     Route: 065
     Dates: start: 202205
  3. ERYTHROPOIETIN [Suspect]
     Active Substance: ERYTHROPOIETIN
     Indication: Myelosuppression
     Dosage: UNK
     Route: 065
     Dates: start: 202205
  4. HUMAN IMMUNOGLOBULIN G [Suspect]
     Active Substance: HUMAN IMMUNOGLOBULIN G
     Indication: Immune enhancement therapy
     Dosage: UNK
     Route: 042
     Dates: start: 202205
  5. THROMBOPOIETIN [Concomitant]
     Active Substance: THROMBOPOIETIN
     Indication: Myelosuppression
     Dosage: UNK
     Route: 065
     Dates: start: 202205
  6. AVATROMBOPAG [Concomitant]
     Active Substance: AVATROMBOPAG
     Indication: Coagulopathy
     Dosage: UNK
     Route: 065
     Dates: start: 202205
  7. HERBALS [Concomitant]
     Active Substance: HERBALS
     Indication: End stage renal disease
     Dosage: 12 GRAM; PER DAY; RECEIVED DECOCTION FOR 14 DAYS
     Route: 065
     Dates: start: 202205, end: 202205
  8. CARBAZOCHROME SODIUM SULFONATE [Concomitant]
     Active Substance: CARBAZOCHROME SODIUM SULFONATE
     Indication: Haemorrhage prophylaxis
     Dosage: UNK
     Route: 065
     Dates: start: 202205
  9. HUMAN PLASMA [Concomitant]
     Active Substance: HUMAN PLASMA
     Indication: Coagulopathy
     Dosage: UNK
     Route: 065
     Dates: start: 202205
  10. FIBRINOGEN HUMAN [Concomitant]
     Active Substance: FIBRINOGEN HUMAN
     Indication: Coagulopathy
     Dosage: UNK
     Route: 065
     Dates: start: 202205
  11. ROXADUSTAT [Concomitant]
     Active Substance: ROXADUSTAT
     Indication: Nephrogenic anaemia
     Dosage: 120 MILLIGRAM, THRICE  A WEEK; RECEIVED 3 TIMES PER WEEK
     Route: 065
     Dates: start: 2022
  12. FELODIPINE [Concomitant]
     Active Substance: FELODIPINE
     Indication: Hypertension
     Dosage: 5 MILLIGRAM, BID
     Route: 065
     Dates: start: 2022
  13. CALCIUM DOBESILATE [Concomitant]
     Active Substance: CALCIUM DOBESILATE
     Indication: Product used for unknown indication
     Dosage: 0.5 GRAM, TID; RECEIVED 3 TIMES PER DAY
     Route: 065
     Dates: start: 2022
  14. SODIUM BICARBONATE [Concomitant]
     Active Substance: SODIUM BICARBONATE
     Indication: Product used for unknown indication
     Dosage: 1 GRAM, TID; RECEIVED 3 TIMES PER DAY
     Route: 065
     Dates: start: 2022
  15. FEBUXOSTAT [Concomitant]
     Active Substance: FEBUXOSTAT
     Indication: Hyperuricaemia
     Dosage: 40 MILLIGRAM; PER DAY
     Route: 065
     Dates: start: 2022
  16. BERAPROST SODIUM [Concomitant]
     Active Substance: BERAPROST SODIUM
     Indication: Product used for unknown indication
     Dosage: 40 MICROGRAM, TID; RECEIVED 3 TIMES PER DAY
     Route: 065
     Dates: start: 2022

REACTIONS (5)
  - Sepsis [Fatal]
  - Septic shock [Fatal]
  - Enterobacter infection [Fatal]
  - Acinetobacter infection [Fatal]
  - Drug ineffective [Fatal]

NARRATIVE: CASE EVENT DATE: 20220101
